FAERS Safety Report 5098009-0 (Version None)
Quarter: 2006Q3

REPORT INFORMATION
  Report Type: 
  Country: None (occurrence: None)
  Receive Date: 20060905
  Receipt Date: 20060905
  Transmission Date: 20061208
  Serious: Yes (Death)
  Sender: FDA-Public Use
  Company Number: None

PATIENT
  Age: 81 Year
  Sex: Male

DRUGS (2)
  1. ZYVOX [Suspect]
     Indication: ENTEROCOCCAL SEPSIS
     Dosage: 600 MG Q 12 HRS IV
     Route: 042
     Dates: start: 20060316, end: 20060320
  2. ZYVOX [Suspect]
     Indication: ENTEROCOCCAL SEPSIS
     Dosage: 600 MG Q 12 HRS IV
     Route: 042
     Dates: start: 20060418, end: 20060505

REACTIONS (2)
  - ENTEROCOCCAL SEPSIS [None]
  - PLATELET COUNT DECREASED [None]
